FAERS Safety Report 8515855 (Version 2)
Quarter: 2013Q1

REPORT INFORMATION
  Report Type: Report from Study
  Country: US (occurrence: US)
  Receive Date: 20120417
  Receipt Date: 20130204
  Transmission Date: 20140127
  Serious: Yes (Death, Hospitalization)
  Sender: FDA-Public Use
  Company Number: US-ROCHE-1056227

PATIENT
  Age: 64 Year
  Sex: Female

DRUGS (11)
  1. MYCOPHENOLATE MOFETIL [Suspect]
     Indication: RENAL TRANSPLANT
     Route: 048
     Dates: start: 20070225, end: 20111221
  2. BELATACEPT [Suspect]
     Indication: RENAL TRANSPLANT
     Route: 042
     Dates: start: 20070224, end: 20111221
  3. PREDNISONE [Suspect]
     Indication: RENAL TRANSPLANT
     Route: 048
     Dates: start: 20070226
  4. LISINOPRIL [Concomitant]
     Route: 065
     Dates: end: 20111229
  5. TYLENOL [Concomitant]
     Route: 065
     Dates: end: 20111229
  6. CALCIUM W VIT D PLUS ZINC [Concomitant]
     Route: 065
     Dates: start: 20070319, end: 20071229
  7. FLOVENT [Concomitant]
     Route: 065
     Dates: start: 20060426, end: 20110105
  8. SIMVASTATIN [Concomitant]
     Route: 065
     Dates: start: 2007, end: 20071229
  9. SPIRIVA [Concomitant]
     Route: 065
     Dates: start: 2006, end: 20120105
  10. CIPRO [Concomitant]
     Route: 065
     Dates: end: 20111229
  11. LORTAB [Concomitant]
     Route: 065
     Dates: end: 20110105

REACTIONS (5)
  - Non-small cell lung cancer [Fatal]
  - Adrenal mass [Fatal]
  - Pulmonary oedema [Fatal]
  - Malignant pleural effusion [Not Recovered/Not Resolved]
  - Pleural effusion [Not Recovered/Not Resolved]
